FAERS Safety Report 24025232 (Version 2)
Quarter: 2024Q2

REPORT INFORMATION
  Report Type: Spontaneous
  Country: AU (occurrence: AU)
  Receive Date: 20240628
  Receipt Date: 20240628
  Transmission Date: 20240716
  Serious: No
  Sender: FDA-Public Use
  Company Number: AU-ROCHE-3468395

PATIENT
  Sex: Female

DRUGS (1)
  1. PHESGO [Suspect]
     Active Substance: HYALURONIDASE-ZZXF\PERTUZUMAB\TRASTUZUMAB
     Indication: Product used for unknown indication
     Dosage: QUANTITY: 1 X 10ML VIAL
     Route: 058

REACTIONS (3)
  - Intercepted product storage error [Unknown]
  - Inappropriate schedule of product administration [Unknown]
  - No adverse event [Unknown]
